FAERS Safety Report 8586609-2 (Version None)
Quarter: 2012Q3

REPORT INFORMATION
  Report Type: 
  Country: None (occurrence: None)
  Receive Date: 20120810
  Receipt Date: 20120807
  Transmission Date: 20120928
  Serious: Yes (Death, Other)
  Sender: FDA-Public Use
  Company Number: PHHY2012CH068630

PATIENT
  Age: 71 Year
  Sex: Female

DRUGS (3)
  1. METHOTREXATE [Suspect]
     Indication: RHEUMATOID ARTHRITIS
     Dosage: 20 MG, UNK
     Route: 030
     Dates: start: 20090301
  2. FOLIC ACID [Concomitant]
  3. HEXETIDINE [Concomitant]
     Indication: APHTHOUS STOMATITIS
     Dates: start: 20090401

REACTIONS (13)
  - MYOCARDIAL FIBROSIS [None]
  - BRONCHITIS CHRONIC [None]
  - PNEUMONITIS [None]
  - RALES [None]
  - PRODUCTIVE COUGH [None]
  - VASCULITIS [None]
  - RIGHT VENTRICULAR FAILURE [None]
  - LOSS OF CONSCIOUSNESS [None]
  - CARDIAC HYPERTROPHY [None]
  - PULMONARY FIBROSIS [None]
  - ARTERIOSCLEROSIS CORONARY ARTERY [None]
  - PULMONARY OEDEMA [None]
  - CHILLS [None]
